FAERS Safety Report 9533586 (Version 1)
Quarter: 2013Q2

REPORT INFORMATION
  Report Type: Spontaneous
  Country: US (occurrence: None)
  Receive Date: 20130403
  Receipt Date: 20130403
  Transmission Date: 20140414
  Serious: Yes (Other)
  Sender: FDA-Public Use
  Company Number: US-2012-11376

PATIENT
  Sex: 0

DRUGS (2)
  1. BUSULFEX [Suspect]
     Route: 042
  2. FOSPHENYTOIN (FOSPHENYTOIN SODIUM) [Concomitant]

REACTIONS (1)
  - Convulsion [None]
